FAERS Safety Report 21965770 (Version 2)
Quarter: 2023Q1

REPORT INFORMATION
  Report Type: Spontaneous
  Country: US (occurrence: US)
  Receive Date: 20230208
  Receipt Date: 20230217
  Transmission Date: 20230418
  Serious: No
  Sender: FDA-Public Use
  Company Number: US-AMGEN-USASP2023014866

PATIENT
  Age: 57 Year
  Sex: Male

DRUGS (2)
  1. KYPROLIS [Suspect]
     Active Substance: CARFILZOMIB
     Indication: Plasma cell myeloma
     Dosage: 48 MILLIGRAM (27MG/M2)1,2, 8, 9, 15,16 OF A 28 DAY CYCLE
     Route: 042
     Dates: start: 20221115, end: 20230118
  2. KYPROLIS [Suspect]
     Active Substance: CARFILZOMIB
     Indication: Bone neoplasm
     Dosage: 48 MILLIGRAM (27MG/M2)1,2, 8, 9, 15,16 OF A 28 DAY CYCLE
     Route: 042
     Dates: start: 2023

REACTIONS (2)
  - Pain [Unknown]
  - Malaise [Unknown]

NARRATIVE: CASE EVENT DATE: 20230124
